FAERS Safety Report 12301292 (Version 2)
Quarter: 2016Q2

REPORT INFORMATION
  Report Type: Spontaneous
  Country: US (occurrence: US)
  Receive Date: 20160425
  Receipt Date: 20160425
  Transmission Date: 20160815
  Serious: Yes (Hospitalization, Other)
  Sender: FDA-Public Use
  Company Number: US-ELITE LABORATORIES INC.-2016ELT00002

PATIENT
  Age: 48 Year
  Sex: Female

DRUGS (3)
  1. HYDROMORPHONE HYDROCHLORIDE. [Suspect]
     Active Substance: HYDROMORPHONE HYDROCHLORIDE
     Indication: BACK PAIN
     Dosage: 4 MG, 1X/DAY
     Route: 037
  2. HYDROMORPHONE HYDROCHLORIDE. [Suspect]
     Active Substance: HYDROMORPHONE HYDROCHLORIDE
     Dosage: 2 MG, ONCE
     Route: 042
  3. HYDROMORPHONE HYDROCHLORIDE. [Suspect]
     Active Substance: HYDROMORPHONE HYDROCHLORIDE
     Dosage: UNK
     Route: 065

REACTIONS (5)
  - Acidosis [Recovered/Resolved]
  - Device failure [Recovered/Resolved]
  - Chest pain [Recovered/Resolved]
  - Drug withdrawal syndrome [Recovered/Resolved]
  - Mental status changes [Recovered/Resolved]
